FAERS Safety Report 7533360-3 (Version None)
Quarter: 2011Q2

REPORT INFORMATION
  Report Type: 
  Country: None (occurrence: None)
  Receive Date: 20110608
  Receipt Date: 20040621
  Transmission Date: 20111010
  Serious: Yes (Death, Hospitalization)
  Sender: FDA-Public Use
  Company Number: PHHO2004CA06491

PATIENT
  Sex: Female

DRUGS (4)
  1. SYNTHROID [Concomitant]
  2. DITROPAN [Concomitant]
  3. CLOZAPINE [Suspect]
     Indication: SCHIZOPHRENIA
     Dosage: 100 MG, TID
     Route: 048
     Dates: start: 19940901
  4. FERROUS SULFATE TAB [Concomitant]

REACTIONS (4)
  - AORTIC STENOSIS [None]
  - RENAL FAILURE ACUTE [None]
  - HIP FRACTURE [None]
  - CARDIAC FAILURE [None]
